FAERS Safety Report 6661476-2 (Version None)
Quarter: 2010Q1

REPORT INFORMATION
  Report Type: 
  Country: None (occurrence: None)
  Receive Date: 20100331
  Receipt Date: 20100323
  Transmission Date: 20100710
  Serious: Yes (Other)
  Sender: FDA-Public Use
  Company Number: ES-PFIZER INC-2010037465

PATIENT
  Age: 69 Year
  Sex: Male

DRUGS (3)
  1. ATORVASTATIN CALCIUM [Suspect]
     Dosage: 10 MG, 1X/DAY
     Route: 048
     Dates: start: 20090225
  2. OMEPRAZOL ^DAVUR^ [Suspect]
     Dosage: 20 MG, 1X/DAY
     Route: 048
     Dates: start: 20090225
  3. NOLOTIL /SPA/ [Suspect]
     Dosage: 575 MG, 3X/DAY
     Route: 048
     Dates: start: 20090225

REACTIONS (1)
  - ERECTILE DYSFUNCTION [None]
